FAERS Safety Report 6445639-7 (Version None)
Quarter: 2009Q4

REPORT INFORMATION
  Report Type: 
  Country: None (occurrence: None)
  Receive Date: 20091118
  Receipt Date: 20091118
  Transmission Date: 20100525
  Serious: Yes (Disabling)
  Sender: FDA-Public Use
  Company Number: None

PATIENT
  Age: 89 Year
  Sex: Female
  Weight: 36.2878 kg

DRUGS (13)
  1. 240 CHOLINE-MAGNESIUM TRISALICYLATE [Suspect]
     Indication: BACK PAIN
     Dosage: 500 MG/ 5 ML  15 ML TWICE/DAY GTUBE
     Dates: start: 20091001, end: 20091005
  2. 240 CHOLINE-MAGNESIUM TRISALICYLATE [Suspect]
     Indication: BACK PAIN
     Dosage: 500 MG/ 5 ML  15 ML TWICE/DAY GTUBE
     Dates: start: 20091026, end: 20091102
  3. OXYCODONE HCL [Concomitant]
  4. LEVOTHYROXINE SODIUM [Concomitant]
  5. LISINOPRIL [Concomitant]
  6. OMEPRAZOLE [Concomitant]
  7. DILTIAZEM [Concomitant]
  8. FLUOXETINE [Concomitant]
  9. FUROSEMIDE [Concomitant]
  10. LACTULOSE [Concomitant]
  11. KLOR-CON [Concomitant]
  12. OXYGEN 2L [Concomitant]
  13. AMBIEN [Concomitant]

REACTIONS (1)
  - DEAFNESS TRANSITORY [None]
